FAERS Safety Report 13562623 (Version 1)
Quarter: 2017Q2

REPORT INFORMATION
  Report Type: Spontaneous
  Country: US (occurrence: US)
  Receive Date: 20170518
  Receipt Date: 20170518
  Transmission Date: 20170830
  Serious: No
  Sender: FDA-Public Use
  Company Number: None

PATIENT
  Age: 63 Year
  Sex: Female

DRUGS (1)
  1. COSENTYX [Suspect]
     Active Substance: SECUKINUMAB
     Indication: PSORIATIC ARTHROPATHY
     Route: 058
     Dates: start: 20170410, end: 20170516

REACTIONS (6)
  - Somnolence [None]
  - Fatigue [None]
  - Headache [None]
  - Pruritus [None]
  - Hypersensitivity [None]
  - Cellulitis [None]

NARRATIVE: CASE EVENT DATE: 20170501
